FAERS Safety Report 5035356-2 (Version None)
Quarter: 2006Q2

REPORT INFORMATION
  Report Type: 
  Country: None (occurrence: None)
  Receive Date: 20060627
  Receipt Date: 20060621
  Transmission Date: 20061013
  Serious: Yes (Other)
  Sender: FDA-Public Use
  Company Number: JP-AVENTIS-200611938JP

PATIENT
  Age: 77 Year
  Sex: Male

DRUGS (1)
  1. LASIX [Suspect]
     Dates: end: 20050101

REACTIONS (4)
  - CARDIAC FAILURE [None]
  - LIVER PALPABLE SUBCOSTAL [None]
  - RENAL IMPAIRMENT [None]
  - RESPIRATORY RATE INCREASED [None]
